FAERS Safety Report 14506611 (Version 1)
Quarter: 2018Q1

REPORT INFORMATION
  Report Type: Spontaneous
  Country: US (occurrence: US)
  Receive Date: 20180208
  Receipt Date: 20180208
  Transmission Date: 20180509
  Serious: Yes (Other)
  Sender: FDA-Public Use
  Company Number: US-009507513-1802USA002549

PATIENT
  Age: 24 Year
  Sex: Female
  Weight: 74.38 kg

DRUGS (1)
  1. NUVARING [Suspect]
     Active Substance: ETHINYL ESTRADIOL\ETONOGESTREL
     Indication: CONTRACEPTION
     Dosage: 1 RING, 3 WEEKS INSIDE THEN 1 WEEK BREAK
     Route: 067
     Dates: end: 201710

REACTIONS (2)
  - Unintended pregnancy [Unknown]
  - Pregnancy with contraceptive device [Unknown]
